FAERS Safety Report 7098129-5 (Version None)
Quarter: 2010Q4

REPORT INFORMATION
  Report Type: 
  Country: None (occurrence: None)
  Receive Date: 20101112
  Receipt Date: 20101029
  Transmission Date: 20110411
  Serious: Yes (Hospitalization)
  Sender: FDA-Public Use
  Company Number: PHFR2010GB04502

PATIENT
  Sex: Female

DRUGS (8)
  1. ACLASTA [Suspect]
     Indication: OSTEOPOROSIS
     Dosage: 5 MG ONCE YEARLY
     Route: 042
     Dates: start: 20100913
  2. SIMVASTATIN [Concomitant]
     Dosage: UNK
     Route: 048
  3. AMITRIPTYLINE HCL [Concomitant]
     Dosage: UNK
     Route: 048
  4. FUROSEMIDE [Concomitant]
     Dosage: UNK
  5. BISOPROLOL [Concomitant]
     Dosage: UNK
  6. ADCAL-D3 [Concomitant]
     Dosage: UNK
  7. SUMMAVIT [Concomitant]
     Dosage: UNK
  8. SNO TEARS [Concomitant]
     Dosage: 1 DROP

REACTIONS (5)
  - FALL [None]
  - LOWER RESPIRATORY TRACT INFECTION [None]
  - MALAISE [None]
  - MOBILITY DECREASED [None]
  - SEPSIS [None]
